FAERS Safety Report 10650307 (Version 1)
Quarter: 2014Q4

REPORT INFORMATION
  Report Type: Spontaneous
  Country: CN (occurrence: CN)
  Receive Date: 20141213
  Receipt Date: 20141213
  Transmission Date: 20150529
  Serious: Yes (Other)
  Sender: FDA-Public Use
  Company Number: ALCN2014CN006839

PATIENT

DRUGS (1)
  1. FLUORESCITE [Suspect]
     Active Substance: D+C YELLOW NO. 8
     Indication: ANGIOGRAM RETINA
     Dosage: 1 UNK, UNK
     Route: 065

REACTIONS (1)
  - Palpitations [Unknown]
